FAERS Safety Report 7035530-X (Version None)
Quarter: 2010Q4

REPORT INFORMATION
  Report Type: 
  Country: None (occurrence: None)
  Receive Date: 20101008
  Receipt Date: 20100928
  Transmission Date: 20110411
  Serious: Yes (Other)
  Sender: FDA-Public Use
  Company Number: PHHY2010US55248

PATIENT
  Sex: Female

DRUGS (15)
  1. TEGRETOL [Suspect]
     Dosage: ONE TABLET 3 TIMES A DAY ANF 4TH DOSE 2 TABLETS AT NIGHT
     Dates: start: 19780201, end: 19980101
  2. TEGRETOL-XR [Interacting]
  3. KEFLEX [Interacting]
     Indication: INFECTION
     Dosage: UNK
  4. ZITHROMAX [Interacting]
     Dosage: UNK
  5. CIPRO [Interacting]
     Dosage: UNK
  6. DILANTIN [Interacting]
     Dosage: UNK
  7. TEMOXICILLIN [Interacting]
     Dosage: UNK
  8. ANTIHISTAMINE COUGH MEDICINE [Interacting]
     Dosage: UNK
  9. CHLORPHENIRAMINE MALEATE [Interacting]
     Dosage: UNK
  10. ERYTHROMYCIN [Interacting]
     Dosage: UNK
  11. AMPICILLIN [Interacting]
     Dosage: UNK
  12. AUGMENTIN '125' [Interacting]
     Dosage: UNK
  13. AMOXICILLIN [Interacting]
     Dosage: UNK
  14. MACROBID [Interacting]
     Dosage: UNK
  15. CEFIXIME [Concomitant]
     Dosage: 400 MG, ONE TABLET PER DAY

REACTIONS (19)
  - CONVULSION [None]
  - DIZZINESS [None]
  - DRUG INEFFECTIVE [None]
  - DRUG INTERACTION [None]
  - FUNGAL INFECTION [None]
  - GRAND MAL CONVULSION [None]
  - HEART RATE INCREASED [None]
  - HYSTERECTOMY [None]
  - INFECTION [None]
  - LIP SWELLING [None]
  - LIVER DISORDER [None]
  - MALAISE [None]
  - PAIN [None]
  - RASH GENERALISED [None]
  - SOMNOLENCE [None]
  - SURGERY [None]
  - UPPER RESPIRATORY TRACT INFECTION [None]
  - URINARY INCONTINENCE [None]
  - URINARY TRACT INFECTION [None]
